FAERS Safety Report 26207824 (Version 1)
Quarter: 2025Q4

REPORT INFORMATION
  Report Type: Spontaneous
  Country: US (occurrence: None)
  Receive Date: 20251225
  Receipt Date: 20251225
  Transmission Date: 20260117
  Serious: Yes (Hospitalization)
  Sender: FDA-CTU
  Company Number: None

PATIENT
  Age: 75 Year
  Sex: Male
  Weight: 97.5 kg

DRUGS (16)
  1. SEMAGLUTIDE [Suspect]
     Active Substance: SEMAGLUTIDE
  2. TRAMADOL [Concomitant]
     Active Substance: TRAMADOL
  3. OXYCODONE [Concomitant]
     Active Substance: OXYCODONE
  4. RIFAMPIN [Concomitant]
     Active Substance: RIFAMPIN
  5. ONDANSETRON [Concomitant]
     Active Substance: ONDANSETRON
  6. Niacin 1 g [Concomitant]
  7. MIRTAZAPINE [Concomitant]
     Active Substance: MIRTAZAPINE
  8. METOPROLOL SUCCINATE [Concomitant]
     Active Substance: METOPROLOL SUCCINATE
  9. MELOXICAM [Concomitant]
     Active Substance: MELOXICAM
  10. HYDROCHLOROTHIAZIDE [Concomitant]
     Active Substance: HYDROCHLOROTHIAZIDE
  11. Dexamethasone oral solution [Concomitant]
  12. desvenlafaxine ER 50 mg [Concomitant]
  13. CYCLOBENZAPRINE [Concomitant]
     Active Substance: CYCLOBENZAPRINE
  14. ATORVASTATIN [Concomitant]
     Active Substance: ATORVASTATIN
  15. APIXABAN [Concomitant]
     Active Substance: APIXABAN
  16. ALFUZOSIN [Concomitant]
     Active Substance: ALFUZOSIN

REACTIONS (7)
  - Abdominal pain [None]
  - Nausea [None]
  - Vomiting [None]
  - Accidental overdose [None]
  - Small intestinal obstruction [None]
  - Syringe issue [None]
  - Product container issue [None]

NARRATIVE: CASE EVENT DATE: 20251213
